FAERS Safety Report 4820727-7 (Version None)
Quarter: 2005Q4

REPORT INFORMATION
  Report Type: 
  Country: None (occurrence: None)
  Receive Date: 20051026
  Receipt Date: 20051012
  Transmission Date: 20060501
  Serious: Yes (Life-Threatening, Other)
  Sender: FDA-Public Use
  Company Number: 2005-DE-04236GD

PATIENT
  Age: 19 Year
  Sex: Female

DRUGS (3)
  1. PARACETAMOL(PARACETAMOL) [Suspect]
     Dosage: 16 G
  2. DIAZEPAM [Suspect]
     Indication: BUNDLE BRANCH BLOCK RIGHT
     Dosage: A LOADING DOSE OF 2MG/KG
  3. HYDROXYCHLOROQUINE (HYDROXYCHLOROQUINE) [Suspect]
     Dosage: 6 G

REACTIONS (11)
  - ACIDOSIS [None]
  - BLOOD POTASSIUM DECREASED [None]
  - BLOOD POTASSIUM INCREASED [None]
  - BUNDLE BRANCH BLOCK RIGHT [None]
  - CHEST X-RAY ABNORMAL [None]
  - ELECTROCARDIOGRAM QRS COMPLEX PROLONGED [None]
  - ELECTROCARDIOGRAM T WAVE INVERSION [None]
  - MULTIPLE DRUG OVERDOSE [None]
  - SHOCK [None]
  - VENTRICULAR FIBRILLATION [None]
  - VENTRICULAR HYPOKINESIA [None]
